FAERS Safety Report 14279626 (Version 2)
Quarter: 2017Q4

REPORT INFORMATION
  Report Type: Spontaneous
  Country: IT (occurrence: IT)
  Receive Date: 20171212
  Receipt Date: 20171218
  Transmission Date: 20180321
  Serious: Yes (Life-Threatening, Hospitalization, Congenital Anomaly)
  Sender: FDA-Public Use
  Company Number: IT-TEVA-823574ACC

PATIENT
  Sex: Female

DRUGS (6)
  1. NIMESULIDE [Suspect]
     Active Substance: NIMESULIDE
     Indication: SCIATICA
  2. PARACETAMOL [Suspect]
     Active Substance: ACETAMINOPHEN
     Indication: SCIATICA
  3. DICLOFENAC [Suspect]
     Active Substance: DICLOFENAC
     Indication: NEURITIS
     Route: 065
  4. DICLOFENAC [Suspect]
     Active Substance: DICLOFENAC
     Indication: SCIATICA
  5. NIMESULIDE [Suspect]
     Active Substance: NIMESULIDE
     Indication: NEURITIS
     Route: 065
  6. PARACETAMOL [Suspect]
     Active Substance: ACETAMINOPHEN
     Indication: NEURITIS
     Route: 065

REACTIONS (8)
  - Overdose [Unknown]
  - Neonatal respiratory distress syndrome [Unknown]
  - Foetal exposure during pregnancy [Unknown]
  - Cyanosis [Unknown]
  - Contraindication to medical treatment [Unknown]
  - Bradycardia [Unknown]
  - Renal failure [Unknown]
  - Ductus arteriosus premature closure [Unknown]
